FAERS Safety Report 7773029-3 (Version None)
Quarter: 2011Q3

REPORT INFORMATION
  Report Type: 
  Country: None (occurrence: None)
  Receive Date: 20110922
  Receipt Date: 20101123
  Transmission Date: 20111222
  Serious: Yes (Hospitalization)
  Sender: FDA-Public Use
  Company Number: US-ASTRAZENECA-2009SE24340

PATIENT
  Age: 56 Year
  Sex: Female
  Weight: 81.6 kg

DRUGS (4)
  1. SEROQUEL XR [Suspect]
     Indication: BIPOLAR DISORDER
     Route: 048
     Dates: start: 20090101
  2. SEROQUEL XR [Suspect]
     Route: 048
  3. PROZAC [Concomitant]
     Indication: BIPOLAR DISORDER
  4. DEPAKOTE [Concomitant]
     Indication: BIPOLAR DISORDER

REACTIONS (9)
  - CONFUSIONAL STATE [None]
  - AMNESIA [None]
  - INDIFFERENCE [None]
  - CRANIOCEREBRAL INJURY [None]
  - DRUG DOSE OMISSION [None]
  - DYSARTHRIA [None]
  - DISORIENTATION [None]
  - ROAD TRAFFIC ACCIDENT [None]
  - FEELING ABNORMAL [None]
